FAERS Safety Report 5118126-6 (Version None)
Quarter: 2006Q4

REPORT INFORMATION
  Report Type: 
  Country: None (occurrence: None)
  Receive Date: 20061002
  Receipt Date: 20060920
  Transmission Date: 20070319
  Serious: Yes (Other)
  Sender: FDA-Public Use
  Company Number: PHBS2006IT14790

PATIENT
  Sex: Female

DRUGS (2)
  1. ZOLEDRONIC ACID [Suspect]
     Indication: METASTASES TO BONE
     Route: 065
  2. EXEMESTANE [Concomitant]
     Route: 065

REACTIONS (3)
  - COMPUTERISED TOMOGRAM ABNORMAL [None]
  - OSTEONECROSIS [None]
  - PAIN IN JAW [None]
